FAERS Safety Report 4789682-2 (Version None)
Quarter: 2005Q4

REPORT INFORMATION
  Report Type: 
  Country: None (occurrence: None)
  Receive Date: 20051006
  Receipt Date: 20050901
  Transmission Date: 20060501
  Serious: Yes (Hospitalization)
  Sender: FDA-Public Use
  Company Number: BE-BRISTOL-MYERS SQUIBB COMPANY-13097563

PATIENT
  Age: 75 Year
  Sex: Male
  Weight: 73 kg

DRUGS (12)
  1. CISPLATIN [Suspect]
     Indication: NON-SMALL CELL LUNG CANCER
     Route: 042
     Dates: start: 20050725, end: 20050725
  2. GEMCITABINE HCL [Suspect]
     Indication: NON-SMALL CELL LUNG CANCER
     Route: 042
     Dates: start: 20050725, end: 20050725
  3. OL-AMINE [Concomitant]
     Dates: start: 20050606, end: 20050730
  4. VITAMIN B-12 [Concomitant]
     Dates: start: 20050606, end: 20050725
  5. ASAFLOW [Concomitant]
     Indication: HYPERTENSION
     Route: 048
     Dates: start: 20010101
  6. PARIET [Concomitant]
     Indication: PROPHYLAXIS
     Dates: start: 20010101
  7. TILDIEM RETARD [Concomitant]
     Indication: HYPERTENSION
     Dates: start: 20030101
  8. ZOCOR [Concomitant]
     Indication: HYPERLIPIDAEMIA
     Dates: start: 20050712
  9. LAXOBERON [Concomitant]
     Indication: CONSTIPATION
     Route: 048
     Dates: start: 20050704
  10. MEDROL [Concomitant]
     Indication: PROPHYLAXIS
     Route: 048
     Dates: start: 20050612, end: 20050725
  11. SOLU-MEDROL [Concomitant]
     Indication: PROPHYLAXIS
     Route: 042
     Dates: start: 20050612, end: 20050724
  12. FOLATE [Concomitant]

REACTIONS (1)
  - PERITONITIS [None]
